FAERS Safety Report 14802853 (Version 3)
Quarter: 2018Q3

REPORT INFORMATION
  Report Type: Spontaneous
  Country: BE (occurrence: BE)
  Receive Date: 20180424
  Receipt Date: 20180927
  Transmission Date: 20181010
  Serious: Yes (Life-Threatening, Hospitalization)
  Sender: FDA-Public Use
  Company Number: BE-BAUSCH-BL-2018-010769

PATIENT
  Age: 49 Year
  Sex: Female

DRUGS (4)
  1. METOCLOPRAMIDE HYDROCHLORIDE. [Suspect]
     Active Substance: METOCLOPRAMIDE HYDROCHLORIDE
     Indication: PRODUCT USED FOR UNKNOWN INDICATION
     Route: 065
  2. MACROGOL 4000 [Suspect]
     Active Substance: POLYETHYLENE GLYCOL 4000
     Indication: PRODUCT USED FOR UNKNOWN INDICATION
     Route: 065
  3. CODEINE [Suspect]
     Active Substance: CODEINE
     Indication: GASTROINTESTINAL HYPOMOTILITY
     Route: 048
  4. MORPHINE SULFATE. [Suspect]
     Active Substance: MORPHINE SULFATE
     Indication: GASTROINTESTINAL HYPOMOTILITY
     Route: 048

REACTIONS (11)
  - Depressed level of consciousness [Unknown]
  - Miosis [Unknown]
  - Tachycardia [Unknown]
  - Stupor [Unknown]
  - Oesophageal obstruction [Recovered/Resolved]
  - Bradypnoea [Unknown]
  - Intentional product misuse [Unknown]
  - Toxicity to various agents [Unknown]
  - Obstruction gastric [Recovered/Resolved]
  - Hypertension [Unknown]
  - Abdominal discomfort [Unknown]
